FAERS Safety Report 21224972 (Version 1)
Quarter: 2022Q3

REPORT INFORMATION
  Report Type: Spontaneous
  Country: US (occurrence: US)
  Receive Date: 20220817
  Receipt Date: 20220817
  Transmission Date: 20221026
  Serious: No
  Sender: FDA-Public Use
  Company Number: US-OTSUKA-2021_041495

PATIENT
  Age: 24 Year
  Sex: Male

DRUGS (4)
  1. ARIPIPRAZOLE [Suspect]
     Active Substance: ARIPIPRAZOLE
     Indication: Product used for unknown indication
     Dosage: UNK
     Route: 065
  2. KETAMINE [Concomitant]
     Active Substance: KETAMINE
     Indication: Agitation
     Dosage: 250 MG
     Route: 030
  3. LORAZEPAM [Concomitant]
     Active Substance: LORAZEPAM
     Indication: Sedation
     Dosage: 8 MG
     Route: 065
  4. MIDAZOLAM [Concomitant]
     Active Substance: MIDAZOLAM
     Indication: Sedation
     Dosage: 12.5 MG
     Route: 042

REACTIONS (2)
  - Incorrect dose administered [Unknown]
  - Product dose omission issue [Unknown]
